FAERS Safety Report 12092135 (Version 2)
Quarter: 2016Q1

REPORT INFORMATION
  Report Type: Spontaneous
  Country: US (occurrence: US)
  Receive Date: 20160219
  Receipt Date: 20160323
  Transmission Date: 20160526
  Serious: Yes (Hospitalization)
  Sender: FDA-Public Use
  Company Number: US-009507513-1602USA006725

PATIENT
  Age: 55 Year
  Sex: Female

DRUGS (8)
  1. ZETIA [Suspect]
     Active Substance: EZETIMIBE
     Indication: BLOOD CHOLESTEROL ABNORMAL
     Dosage: 10 MG, QD
     Route: 048
     Dates: start: 20150425
  2. UBIDECARENONE [Concomitant]
     Active Substance: UBIDECARENONE
  3. FOLIC ACID. [Concomitant]
     Active Substance: FOLIC ACID
  4. IRON (UNSPECIFIED) [Concomitant]
     Active Substance: IRON
  5. ATORVASTATIN [Concomitant]
     Active Substance: ATORVASTATIN
  6. NOVOLOG [Concomitant]
     Active Substance: INSULIN ASPART
  7. LANTUS [Concomitant]
     Active Substance: INSULIN GLARGINE
  8. NATURES MADE CHOLEST OFF [Concomitant]

REACTIONS (2)
  - Limb injury [Recovering/Resolving]
  - Localised infection [Recovering/Resolving]

NARRATIVE: CASE EVENT DATE: 20151222
